FAERS Safety Report 19639091 (Version 1)
Quarter: 2021Q3

REPORT INFORMATION
  Report Type: Spontaneous
  Country: US (occurrence: US)
  Receive Date: 20210729
  Receipt Date: 20210729
  Transmission Date: 20211014
  Serious: No
  Sender: FDA-Public Use
  Company Number: US-SA-2021SA250687

PATIENT
  Age: 67 Year
  Sex: Female

DRUGS (3)
  1. ATORVASTATIN [Concomitant]
     Active Substance: ATORVASTATIN
  2. DUPIXENT [Suspect]
     Active Substance: DUPILUMAB
     Indication: DERMATITIS ATOPIC
     Route: 058
     Dates: start: 20210703
  3. ENALAPRIL [Concomitant]
     Active Substance: ENALAPRIL

REACTIONS (1)
  - Ocular hyperaemia [Unknown]

NARRATIVE: CASE EVENT DATE: 20210724
